FAERS Safety Report 14531438 (Version 1)
Quarter: 2018Q1

REPORT INFORMATION
  Report Type: Spontaneous
  Country: FR (occurrence: FR)
  Receive Date: 20180214
  Receipt Date: 20180214
  Transmission Date: 20180509
  Serious: Yes (Hospitalization)
  Sender: FDA-Public Use
  Company Number: FR-ASTRAZENECA-2018SE16144

PATIENT
  Age: 37 Year
  Sex: Female

DRUGS (7)
  1. OLAPARIB. [Suspect]
     Active Substance: OLAPARIB
     Indication: MALIGNANT PERITONEAL NEOPLASM
     Dosage: DAILY
     Route: 048
     Dates: start: 20170109, end: 20180101
  2. BEVACIZUMAB. [Suspect]
     Active Substance: BEVACIZUMAB
     Indication: MALIGNANT PERITONEAL NEOPLASM
     Route: 042
     Dates: start: 20170109, end: 20171012
  3. TRAMADOL. [Concomitant]
     Active Substance: TRAMADOL
     Route: 048
  4. OLAPARIB. [Suspect]
     Active Substance: OLAPARIB
     Indication: MALIGNANT PERITONEAL NEOPLASM
     Dosage: DAILY
     Route: 048
  5. IMIGRANE [Concomitant]
     Active Substance: SUMATRIPTAN SUCCINATE
     Route: 048
  6. PRIMPERAN [Concomitant]
     Active Substance: METOCLOPRAMIDE HYDROCHLORIDE
     Route: 048
  7. PROZAC [Concomitant]
     Active Substance: FLUOXETINE HYDROCHLORIDE
     Route: 048

REACTIONS (1)
  - Erysipelas [Not Recovered/Not Resolved]

NARRATIVE: CASE EVENT DATE: 20180104
